FAERS Safety Report 4299515-9 (Version None)
Quarter: 2004Q1

REPORT INFORMATION
  Report Type: 
  Country: None (occurrence: None)
  Receive Date: 20040217
  Receipt Date: 20040217
  Transmission Date: 20041129
  Serious: Yes (Other)
  Sender: FDA-Public Use
  Company Number: None

PATIENT
  Age: 60 Year
  Sex: Male
  Weight: 74.8435 kg

DRUGS (1)
  1. ZICAM GUMTECH [Suspect]
     Dosage: NASAL
     Route: 045
     Dates: start: 20030910, end: 20030910

REACTIONS (1)
  - ANOSMIA [None]
